FAERS Safety Report 12357561 (Version 1)
Quarter: 2016Q2

REPORT INFORMATION
  Report Type: Report from Study
  Country: CN (occurrence: CN)
  Receive Date: 20160512
  Receipt Date: 20160512
  Transmission Date: 20160815
  Serious: Yes (Other)
  Sender: FDA-Public Use
  Company Number: CN-ROCHE-1754003

PATIENT

DRUGS (2)
  1. CAPECITABINE. [Suspect]
     Active Substance: CAPECITABINE
     Indication: GASTRIC CANCER
     Dosage: TWICE DAILY (IN MORNING AND EVENING); FROM DAY 1 TO 14; REPEATED ONCE EVERY 3 WEEKS
     Route: 048
  2. OXALIPLATIN. [Suspect]
     Active Substance: OXALIPLATIN
     Indication: GASTRIC CANCER
     Dosage: FOR 2 HOURS ON DAY 1 OF 14 DAY COURSE; REPEATED EVERY 3 WEEKS
     Route: 042

REACTIONS (6)
  - White blood cell count decreased [Recovering/Resolving]
  - Haemoglobin decreased [Recovering/Resolving]
  - Hepatic function abnormal [Recovering/Resolving]
  - Neutrophil count decreased [Recovering/Resolving]
  - Gastrointestinal disorder [Recovering/Resolving]
  - Mucosal inflammation [Recovering/Resolving]
